FAERS Safety Report 7291718-4 (Version None)
Quarter: 2011Q1

REPORT INFORMATION
  Report Type: 
  Country: None (occurrence: None)
  Receive Date: 20110214
  Receipt Date: 20110207
  Transmission Date: 20110831
  Serious: Yes (Other)
  Sender: FDA-Public Use
  Company Number: DE-PFIZER INC-2011026923

PATIENT
  Age: 68 Year
  Sex: Male
  Weight: 73.9 kg

DRUGS (9)
  1. HYDROCORTISONE [Concomitant]
     Indication: BLOOD CORTICOTROPHIN DECREASED
     Dosage: 10 MG, 1X/DAY
     Dates: start: 19940309, end: 20060707
  2. TESTOSTERONE [Concomitant]
     Indication: HYPOGONADISM
  3. LEVOTHYROXINE [Concomitant]
     Indication: BLOOD THYROID STIMULATING HORMONE DECREASED
     Dosage: 75 UG, 1X/DAY
     Dates: start: 19940309
  4. TOREM [Concomitant]
     Indication: RENAL DISORDER
     Dosage: 5 MG, 1X/DAY
     Dates: start: 20040701
  5. PANTOPRAZOLE [Concomitant]
     Indication: GASTROOESOPHAGEAL REFLUX DISEASE
     Dosage: 20 MG, 1X/DAY
     Dates: start: 20030404
  6. SOMATROPIN [Suspect]
     Indication: HYPOPITUITARISM
     Dosage: 0.2 MG, 1X/DAY
     Route: 058
     Dates: start: 20051129, end: 20060621
  7. LEVOTHYROXINE [Concomitant]
     Indication: PRIMARY HYPOTHYROIDISM
  8. TESTOSTERONE [Concomitant]
     Indication: BLOOD LUTEINISING HORMONE DECREASED
     Dosage: 250 MG, MONTHLY
     Dates: start: 19940124
  9. TESTOSTERONE [Concomitant]
     Indication: BLOOD FOLLICLE STIMULATING HORMONE DECREASED

REACTIONS (2)
  - PITUITARY TUMOUR BENIGN [None]
  - NEOPLASM PROGRESSION [None]
